FAERS Safety Report 9841684 (Version 1)
Quarter: 2014Q1

REPORT INFORMATION
  Report Type: Other
  Country: IN (occurrence: IN)
  Receive Date: 20140124
  Receipt Date: 20140124
  Transmission Date: 20141002
  Serious: Yes (Other)
  Sender: FDA-Public Use
  Company Number: IN-US-EMD SERONO, INC.-7261782

PATIENT
  Age: 24 Year
  Sex: Female

DRUGS (11)
  1. CLOMIPHENE [Suspect]
     Indication: OVULATION INDUCTION
  2. METFORMIN [Suspect]
     Indication: PRODUCT USED FOR UNKNOWN INDICATION
  3. PROGESTERONE [Suspect]
     Indication: PRODUCT USED FOR UNKNOWN INDICATION
     Dosage: MICRONISED
  4. PROGESTERONE [Suspect]
     Route: 030
  5. PREDNISOLONE [Suspect]
     Indication: PRODUCT USED FOR UNKNOWN INDICATION
  6. PREDNISOLONE [Suspect]
     Dosage: 5+1.25 MG
  7. PREDNISOLONE [Suspect]
     Dosage: 6.25+1.25 MG
  8. PREDNISOLONE [Suspect]
     Dosage: 7.50+0 MG
  9. PREDNISOLONE [Suspect]
     Dosage: 7.50+1.25 MG
  10. FOLIC ACID [Concomitant]
     Indication: PRODUCT USED FOR UNKNOWN INDICATION
  11. CALCIUM [Concomitant]
     Indication: PRODUCT USED FOR UNKNOWN INDICATION

REACTIONS (4)
  - Abortion threatened [Unknown]
  - Vaginal haemorrhage [Unknown]
  - Premature rupture of membranes [Unknown]
  - Abdominal pain lower [Unknown]
